FAERS Safety Report 5337486-4 (Version None)
Quarter: 2007Q2

REPORT INFORMATION
  Report Type: 
  Country: None (occurrence: None)
  Receive Date: 20070529
  Receipt Date: 20070517
  Transmission Date: 20071010
  Serious: Yes (Other)
  Sender: FDA-Public Use
  Company Number: JP-PFIZER INC-2007031291

PATIENT
  Age: 77 Year
  Sex: Female

DRUGS (8)
  1. LIPITOR [Suspect]
     Indication: HYPERLIPIDAEMIA
     Dosage: DAILY DOSE:10MG
     Route: 048
     Dates: start: 20050101
  2. ANASTROZOLE [Concomitant]
     Route: 048
  3. AMLODIN [Concomitant]
     Route: 048
  4. LASIX [Concomitant]
  5. ALLELOCK [Concomitant]
     Route: 048
  6. WARFARIN SODIUM [Concomitant]
     Route: 048
  7. FLUTICASONE PROPIONATE [Concomitant]
     Route: 055
  8. SEREVENT [Concomitant]
     Route: 055

REACTIONS (5)
  - DEPRESSION [None]
  - GRIP STRENGTH DECREASED [None]
  - MYALGIA [None]
  - PAIN [None]
  - PAIN IN EXTREMITY [None]
